FAERS Safety Report 15844666 (Version 2)
Quarter: 2019Q1

REPORT INFORMATION
  Report Type: Report from Study
  Country: CO (occurrence: CO)
  Receive Date: 20190118
  Receipt Date: 20190118
  Transmission Date: 20190417
  Serious: Yes (Hospitalization)
  Sender: FDA-Public Use
  Company Number: PHHY2018CO063940

PATIENT
  Age: 72 Year
  Sex: Male
  Weight: 85 kg

DRUGS (3)
  1. CARVEDILOL. [Suspect]
     Active Substance: CARVEDILOL
     Indication: PRODUCT USED FOR UNKNOWN INDICATION
     Dosage: UNK
     Route: 065
  2. FUROSEMIDE. [Concomitant]
     Active Substance: FUROSEMIDE
     Indication: PRODUCT USED FOR UNKNOWN INDICATION
     Dosage: UNK
     Route: 065
  3. ENTRESTO [Suspect]
     Active Substance: SACUBITRIL\VALSARTAN
     Indication: CARDIAC FAILURE
     Dosage: 50 MG ( 24.3 MG SACUBITRIL AND 25.7 MG VALSARTAN), Q12H
     Route: 048
     Dates: start: 20180701

REACTIONS (7)
  - Pulmonary oedema [Unknown]
  - Abdominal pain upper [Unknown]
  - Cardiac failure [Unknown]
  - Complication associated with device [Unknown]
  - Mitral valve incompetence [Unknown]
  - Malaise [Unknown]
  - Abdominal distension [Unknown]

NARRATIVE: CASE EVENT DATE: 20180703
